FAERS Safety Report 9897351 (Version 1)
Quarter: 2014Q1

REPORT INFORMATION
  Report Type: Spontaneous
  Country: US (occurrence: US)
  Receive Date: 20140214
  Receipt Date: 20140214
  Transmission Date: 20141002
  Serious: No
  Sender: FDA-Public Use
  Company Number: US-009507513-1402USA006829

PATIENT
  Age: 16 Year
  Sex: Female
  Weight: 59.86 kg

DRUGS (2)
  1. NUVARING [Suspect]
     Indication: CONTRACEPTION
     Dosage: 3 WEEKS IN, 3 WEEKS IN, NO BREAK
     Route: 067
     Dates: start: 20140211
  2. NUVARING [Suspect]
     Indication: MENSTRUATION IRREGULAR

REACTIONS (3)
  - Migraine [Unknown]
  - Rash [Unknown]
  - Drug prescribing error [Unknown]
